FAERS Safety Report 5426227-8 (Version None)
Quarter: 2007Q3

REPORT INFORMATION
  Report Type: 
  Country: None (occurrence: None)
  Receive Date: 20070827
  Receipt Date: 20070816
  Transmission Date: 20080115
  Serious: Yes (Death)
  Sender: FDA-Public Use
  Company Number: FR-ROCHE-511926

PATIENT
  Age: 71 Year
  Sex: Male
  Weight: 76 kg

DRUGS (6)
  1. CAPECITABINE [Suspect]
     Dosage: ADMINISTERED AS SPLIT DAILY DOSE (EVERY 12 HOURS), FOR 14 DAYS OF EVERY 3 WEEK CYCLE.
     Route: 048
     Dates: start: 20070720, end: 20070809
  2. BEVACIZUMAB [Suspect]
     Dosage: DOSE FORM: VIALS
     Route: 042
     Dates: start: 20070720, end: 20070809
  3. IRINOTECAN HCL [Suspect]
     Dosage: DOSE FORM: INFUSION
     Route: 042
     Dates: start: 20070720, end: 20070809
  4. 1 CONCOMITANT DRUG [Concomitant]
     Dosage: DRUG NAME REPORTED AS BIPROFENID
  5. LYTOS [Concomitant]
  6. TOPALGIC LP (TRAMADOL) [Concomitant]
     Dosage: DRUG REPORTED AS TOPALGIC 100 LP

REACTIONS (10)
  - ANOREXIA [None]
  - ASTHENIA [None]
  - BLOOD CREATININE INCREASED [None]
  - BLOOD UREA INCREASED [None]
  - DEATH [None]
  - DIARRHOEA [None]
  - MUSCULOSKELETAL CHEST PAIN [None]
  - NAUSEA [None]
  - VOMITING [None]
  - WEIGHT DECREASED [None]
